FAERS Safety Report 13818818 (Version 1)
Quarter: 2017Q3

REPORT INFORMATION
  Report Type: Spontaneous
  Country: US (occurrence: US)
  Receive Date: 20170801
  Receipt Date: 20170801
  Transmission Date: 20171127
  Serious: No
  Sender: FDA-Public Use
  Company Number: US-BRISTOL-MYERS SQUIBB COMPANY-BMS-2017-068143

PATIENT
  Sex: Male
  Weight: 155 kg

DRUGS (1)
  1. REYATAZ [Suspect]
     Active Substance: ATAZANAVIR SULFATE
     Indication: HIV INFECTION
     Dosage: 1 DF, UNK
     Route: 048

REACTIONS (6)
  - Asthenia [Unknown]
  - Stress [Unknown]
  - Insomnia [Unknown]
  - Drug dose omission [Unknown]
  - Fatigue [Unknown]
  - Weight decreased [Unknown]
